FAERS Safety Report 7392566-7 (Version None)
Quarter: 2011Q2

REPORT INFORMATION
  Report Type: 
  Country: None (occurrence: None)
  Receive Date: 20110404
  Receipt Date: 20110324
  Transmission Date: 20111010
  Serious: Yes (Hospitalization)
  Sender: FDA-Public Use
  Company Number: JP-ASTRAZENECA-2011SE18399

PATIENT
  Age: 62 Year
  Sex: Male

DRUGS (6)
  1. PARAPRES COMPRIMIDOS [Suspect]
     Indication: HYPERTENSION
     Route: 048
     Dates: start: 20080301, end: 20090829
  2. ESERTIA [Concomitant]
     Indication: HYPERTENSION
     Route: 048
     Dates: end: 20080829
  3. SEGURIL [Interacting]
     Indication: HYPERTENSION
     Route: 048
     Dates: end: 20080828
  4. COROPRES [Concomitant]
     Indication: HYPERTENSION
     Route: 048
  5. ALLOPURINOL [Concomitant]
     Indication: HYPERURICAEMIA
     Route: 048
     Dates: end: 20080829
  6. NORVASC [Concomitant]
     Indication: HYPERTENSION
     Route: 048

REACTIONS (2)
  - RENAL FAILURE ACUTE [None]
  - DRUG INTERACTION [None]
